FAERS Safety Report 7570178-X (Version None)
Quarter: 2011Q2

REPORT INFORMATION
  Report Type: 
  Country: None (occurrence: None)
  Receive Date: 20110622
  Receipt Date: 20110622
  Transmission Date: 20111010
  Serious: Yes (Other)
  Sender: FDA-Public Use
  Company Number: None

PATIENT
  Age: 74 Year
  Sex: Male
  Weight: 83.9154 kg

DRUGS (2)
  1. FOLPLEX 2.2 TAB - BRECKENRIDGE [Suspect]
     Indication: POSTOPERATIVE CARE
     Dosage: 2.2 TAB 1HS ORAL
     Route: 048
  2. FOLPLEX 2.2 TAB - BRECKENRIDGE [Suspect]
     Indication: VASCULAR GRAFT
     Dosage: 2.2 TAB 1HS ORAL
     Route: 048

REACTIONS (2)
  - MEDICATION RESIDUE [None]
  - PRODUCT SOLUBILITY ABNORMAL [None]
